FAERS Safety Report 14196548 (Version 1)
Quarter: 2017Q4

REPORT INFORMATION
  Report Type: Spontaneous
  Country: US (occurrence: US)
  Receive Date: 20171116
  Receipt Date: 20171116
  Transmission Date: 20180321
  Serious: No
  Sender: FDA-Public Use
  Company Number: US-ALLERGAN-1716590US

PATIENT
  Sex: Female
  Weight: 76.2 kg

DRUGS (1)
  1. ENABLEX [Suspect]
     Active Substance: DARIFENACIN HYDROBROMIDE
     Indication: URINARY INCONTINENCE
     Dosage: 7.5 MG, QPM
     Route: 048

REACTIONS (3)
  - Breath odour [Recovering/Resolving]
  - Dry mouth [Recovering/Resolving]
  - Oral discomfort [Recovering/Resolving]
